FAERS Safety Report 6482893-X (Version None)
Quarter: 2009Q4

REPORT INFORMATION
  Report Type: 
  Country: None (occurrence: None)
  Receive Date: 20091209
  Receipt Date: 20091029
  Transmission Date: 20100525
  Serious: No
  Sender: FDA-Public Use
  Company Number: US-AMGEN-KDL371855

PATIENT
  Sex: Female

DRUGS (6)
  1. ENBREL [Suspect]
     Indication: PSORIASIS
     Dates: start: 20080401
  2. UNSPECIFIED CONTRACEPTIVE [Concomitant]
  3. SPIRONOLACTONE [Concomitant]
  4. METHOTREXATE [Concomitant]
  5. MINOCYCLINE [Concomitant]
  6. FOLIC ACID [Concomitant]

REACTIONS (1)
  - HYPOAESTHESIA [None]
